FAERS Safety Report 14212988 (Version 1)
Quarter: 2017Q4

REPORT INFORMATION
  Report Type: Spontaneous
  Country: FR (occurrence: FR)
  Receive Date: 20171121
  Receipt Date: 20171121
  Transmission Date: 20180321
  Serious: Yes (Other)
  Sender: FDA-Public Use
  Company Number: FR-MERCK KGAA-2034826

PATIENT
  Age: 92 Year
  Sex: Female

DRUGS (3)
  1. NOVOTHYROX [Suspect]
     Active Substance: LEVOTHYROXINE SODIUM
  2. NOVOTHYROX [Suspect]
     Active Substance: LEVOTHYROXINE SODIUM
     Indication: PRODUCT USED FOR UNKNOWN INDICATION
  3. NOVOTHYROX [Suspect]
     Active Substance: LEVOTHYROXINE SODIUM

REACTIONS (8)
  - Back pain [None]
  - Fall [None]
  - Confusional state [None]
  - Pain in extremity [None]
  - Diarrhoea [None]
  - Weight decreased [None]
  - Neuralgia [None]
  - Blood thyroid stimulating hormone abnormal [None]

NARRATIVE: CASE EVENT DATE: 2017
